FAERS Safety Report 4776571-2 (Version None)
Quarter: 2005Q3

REPORT INFORMATION
  Report Type: 
  Country: None (occurrence: None)
  Receive Date: 20050923
  Receipt Date: 20050914
  Transmission Date: 20060218
  Serious: Yes (Other)
  Sender: FDA-Public Use
  Company Number: PHNU2005DE03249

PATIENT

DRUGS (1)
  1. DICLOFENAC [Suspect]
     Route: 030

REACTIONS (2)
  - EMBOLIA CUTIS MEDICAMENTOSA [None]
  - SKIN HAEMORRHAGE [None]
